FAERS Safety Report 9299292 (Version 3)
Quarter: 2013Q2

REPORT INFORMATION
  Report Type: Spontaneous
  Country: JP (occurrence: JP)
  Receive Date: 20130520
  Receipt Date: 20130620
  Transmission Date: 20140414
  Serious: Yes (Other)
  Sender: FDA-Public Use
  Company Number: PHHY2013JP049980

PATIENT
  Age: 42 Year
  Sex: Female

DRUGS (4)
  1. APRESOLIN [Suspect]
     Indication: HYPERTENSION
     Dosage: UNK UKN, UNK
  2. METHYLDOPA [Suspect]
     Indication: BLOOD PRESSURE ABNORMAL
  3. RITODRINE [Suspect]
     Route: 048
  4. ALDOMET [Concomitant]
     Dosage: UNK UKN, UNK

REACTIONS (4)
  - Premature delivery [Recovered/Resolved]
  - Muscle strain [Recovered/Resolved]
  - Premature separation of placenta [Recovered/Resolved]
  - Maternal exposure during pregnancy [Recovered/Resolved]
